FAERS Safety Report 4414415-9 (Version None)
Quarter: 2004Q3

REPORT INFORMATION
  Report Type: 
  Country: None (occurrence: None)
  Receive Date: 20040803
  Receipt Date: 20040728
  Transmission Date: 20050211
  Serious: Yes (Life-Threatening, Hospitalization)
  Sender: FDA-Public Use
  Company Number: GB-MERCK-0407GBR00277

PATIENT
  Age: 45 Year
  Sex: Male
  Weight: 110 kg

DRUGS (7)
  1. ASPIRIN [Concomitant]
     Route: 048
  2. CYCLOPHOSPHAMIDE [Concomitant]
     Route: 048
     Dates: start: 20040406, end: 20040629
  3. DECADRON [Suspect]
     Indication: MULTIPLE MYELOMA
     Route: 048
     Dates: start: 20040406, end: 20040627
  4. FUROSEMIDE [Concomitant]
     Route: 048
  5. GABAPENTIN [Concomitant]
     Indication: NEUROPATHIC PAIN
     Route: 048
  6. OXYCODONE HYDROCHLORIDE [Concomitant]
     Route: 048
  7. THALIDOMIDE [Suspect]
     Indication: MULTIPLE MYELOMA
     Route: 048
     Dates: start: 20040406, end: 20040627

REACTIONS (2)
  - PHLEBOTHROMBOSIS [None]
  - PULMONARY EMBOLISM [None]
